FAERS Safety Report 4697970-3 (Version None)
Quarter: 2005Q2

REPORT INFORMATION
  Report Type: 
  Country: None (occurrence: None)
  Receive Date: 20050621
  Receipt Date: 20050606
  Transmission Date: 20051028
  Serious: Yes (Death, Other)
  Sender: FDA-Public Use
  Company Number: USA030741935

PATIENT
  Age: 70 Year
  Sex: Female
  Weight: 61 kg

DRUGS (13)
  1. FORTEO [Suspect]
     Indication: OSTEOPOROSIS
     Dosage: 20 UG/DAY
     Dates: start: 20030714
  2. AMBIEN [Concomitant]
  3. LIBRIUM [Concomitant]
  4. PLAVIX [Concomitant]
  5. ASPIRIN [Concomitant]
  6. PRAVACHOL [Concomitant]
  7. PREVACID [Concomitant]
  8. SENOKOT [Concomitant]
  9. CALTRATE + D [Concomitant]
  10. SOLU-MEDROL [Concomitant]
  11. CYTOXAN [Concomitant]
  12. SEROQUEL [Concomitant]
  13. PREDNISONE TAB [Concomitant]

REACTIONS (5)
  - APHASIA [None]
  - BACK PAIN [None]
  - BLOOD PRESSURE DECREASED [None]
  - DIZZINESS [None]
  - MUSCLE SPASMS [None]
